FAERS Safety Report 7733510-X (Version None)
Quarter: 2011Q3

REPORT INFORMATION
  Report Type: 
  Country: None (occurrence: None)
  Receive Date: 20110907
  Receipt Date: 20110907
  Transmission Date: 20111222
  Serious: Yes (Other)
  Sender: FDA-Public Use
  Company Number: None

PATIENT
  Age: 62 Year
  Sex: Male
  Weight: 81.646 kg

DRUGS (1)
  1. NASONEX [Suspect]
     Indication: MULTIPLE ALLERGIES
     Dosage: 50MCG X 2 X 2
     Dates: start: 20110904, end: 20110906

REACTIONS (3)
  - NASAL DISCOMFORT [None]
  - THROAT IRRITATION [None]
  - PRODUCT QUALITY ISSUE [None]
